FAERS Safety Report 4637159-7 (Version None)
Quarter: 2005Q2

REPORT INFORMATION
  Report Type: 
  Country: None (occurrence: None)
  Receive Date: 20050325
  Receipt Date: 20050104
  Transmission Date: 20051028
  Serious: No
  Sender: FDA-Public Use
  Company Number: USA040977961

PATIENT
  Age: 21 Year
  Sex: Female

DRUGS (2)
  1. FORTEO [Suspect]
     Indication: HYPOPARATHYROIDISM
     Dosage: 20 UG/1 DAY
  2. SYNTHROID [Concomitant]

REACTIONS (2)
  - MEDICATION ERROR [None]
  - PRESCRIBED OVERDOSE [None]
